FAERS Safety Report 10429082 (Version 2)
Quarter: 2014Q4

REPORT INFORMATION
  Report Type: Report from Study
  Country: JP (occurrence: JP)
  Receive Date: 20140904
  Receipt Date: 20141107
  Transmission Date: 20150528
  Serious: Yes (Hospitalization)
  Sender: FDA-Public Use
  Company Number: JP-ROCHE-1457601

PATIENT
  Age: 67 Year
  Sex: Female

DRUGS (7)
  1. RANIBIZUMAB [Suspect]
     Active Substance: RANIBIZUMAB
     Route: 050
     Dates: start: 20090709, end: 20090709
  2. OMEPRAZON [Concomitant]
     Active Substance: OMEPRAZOLE
     Route: 065
     Dates: start: 20090714
  3. TENORMIN [Concomitant]
     Active Substance: ATENOLOL
     Route: 065
     Dates: start: 20090714
  4. RANIBIZUMAB [Suspect]
     Active Substance: RANIBIZUMAB
     Indication: AGE-RELATED MACULAR DEGENERATION
     Route: 050
     Dates: start: 20090507
  5. RANIBIZUMAB [Suspect]
     Active Substance: RANIBIZUMAB
     Route: 050
     Dates: start: 20090611
  6. GATIFLO [Concomitant]
     Active Substance: GATIFLOXACIN
     Route: 065
     Dates: start: 200905
  7. NU-LOTAN [Concomitant]
     Active Substance: LOSARTAN POTASSIUM
     Route: 065
     Dates: start: 20090714

REACTIONS (3)
  - Aortic dissection [Recovering/Resolving]
  - Fall [Unknown]
  - Back pain [Unknown]

NARRATIVE: CASE EVENT DATE: 20090714
